FAERS Safety Report 5312319-0 (Version None)
Quarter: 2007Q2

REPORT INFORMATION
  Report Type: 
  Country: None (occurrence: None)
  Receive Date: 20070430
  Receipt Date: 20061031
  Transmission Date: 20071010
  Serious: No
  Sender: FDA-Public Use
  Company Number: 2006UW21083

PATIENT
  Age: 73 Year
  Sex: Female
  Weight: 59 kg

DRUGS (8)
  1. NEXIUM [Suspect]
     Indication: DUODENAL ULCER
     Route: 048
     Dates: start: 20060501
  2. NEXIUM [Suspect]
     Route: 048
     Dates: start: 20060101, end: 20060501
  3. TYLENOL [Concomitant]
  4. HUMULIN 70/30 [Concomitant]
  5. HUMULIN N [Concomitant]
  6. INSULIN [Concomitant]
  7. VALIUM [Concomitant]
  8. VITAMIN D [Concomitant]

REACTIONS (7)
  - DECREASED APPETITE [None]
  - ERUCTATION [None]
  - HEADACHE [None]
  - HOT FLUSH [None]
  - NAUSEA [None]
  - SINUS DISORDER [None]
  - THIRST [None]
